FAERS Safety Report 4294478-4 (Version None)
Quarter: 2004Q1

REPORT INFORMATION
  Report Type: 
  Country: None (occurrence: None)
  Receive Date: 20040211
  Receipt Date: 20040205
  Transmission Date: 20041129
  Serious: Yes (Death, Hospitalization, Other)
  Sender: FDA-Public Use
  Company Number: 2004193124US

PATIENT
  Age: 91 Year
  Sex: Female

DRUGS (3)
  1. CELEBREX [Suspect]
     Indication: ARTHRITIS
     Dosage: 100 MIG TID; ORAL
     Route: 048
     Dates: start: 20001004, end: 20001030
  2. VICODIN [Suspect]
     Indication: ARTHRITIS
     Dates: start: 20000612
  3. MORPHINE [Suspect]
     Indication: ARTHRITIS
     Dates: start: 20000612

REACTIONS (12)
  - CONSTIPATION [None]
  - CONTUSION [None]
  - DECUBITUS ULCER [None]
  - DEMENTIA [None]
  - DRUG INTERACTION [None]
  - INTESTINAL OBSTRUCTION [None]
  - INTESTINAL PERFORATION [None]
  - PAIN [None]
  - PNEUMONIA [None]
  - POST PROCEDURAL COMPLICATION [None]
  - SEPSIS [None]
  - URINARY INCONTINENCE [None]
